FAERS Safety Report 25785811 (Version 1)
Quarter: 2025Q3

REPORT INFORMATION
  Report Type: Spontaneous
  Country: US (occurrence: None)
  Receive Date: 20250909
  Receipt Date: 20250909
  Transmission Date: 20251021
  Serious: Yes (Other)
  Sender: FDA-CTU
  Company Number: None

PATIENT
  Age: 63 Year
  Sex: Female

DRUGS (1)
  1. ENBREL [Suspect]
     Active Substance: ETANERCEPT
     Indication: Rheumatoid vasculitis
     Dosage: 50MG WEEKLY

REACTIONS (4)
  - Rheumatoid arthritis [None]
  - Lipoma [None]
  - Pruritus [None]
  - Pain in jaw [None]
